FAERS Safety Report 7479078-7 (Version None)
Quarter: 2011Q2

REPORT INFORMATION
  Report Type: 
  Country: None (occurrence: None)
  Receive Date: 20110513
  Receipt Date: 20110509
  Transmission Date: 20111010
  Serious: Yes (Other)
  Sender: FDA-Public Use
  Company Number: US-MERCK-1103USA02611

PATIENT
  Age: 71 Year
  Sex: Female

DRUGS (1)
  1. HYZAAR [Suspect]
     Route: 048

REACTIONS (7)
  - MYOCARDIAL INFARCTION [None]
  - CARDIAC DISORDER [None]
  - BLOOD PRESSURE ABNORMAL [None]
  - PNEUMONIA [None]
  - BRONCHITIS [None]
  - ARTERIAL DISORDER [None]
  - COUGH [None]
